FAERS Safety Report 12250234 (Version 3)
Quarter: 2016Q2

REPORT INFORMATION
  Report Type: Spontaneous
  Country: JP (occurrence: JP)
  Receive Date: 20160408
  Receipt Date: 20160502
  Transmission Date: 20160815
  Serious: Yes (Life-Threatening, Hospitalization, Other)
  Sender: FDA-Public Use
  Company Number: JP-009507513-1602JPN013016

PATIENT
  Age: 84 Year
  Sex: Male
  Weight: 40 kg

DRUGS (10)
  1. SENNOSIDE [Concomitant]
     Active Substance: SENNOSIDES
     Indication: CONSTIPATION
     Dosage: 2 DOSAGE FORM (DF), QD
     Route: 048
     Dates: start: 20151215, end: 20160112
  2. BROTIZOLAM [Concomitant]
     Active Substance: BROTIZOLAM
     Indication: INSOMNIA
     Dosage: 0.25 MG, QD
     Route: 048
     Dates: start: 20151218
  3. URIEF [Concomitant]
     Active Substance: SILODOSIN
     Indication: DYSURIA
     Dosage: 4 MG, QD
     Route: 048
     Dates: start: 20151215
  4. UBRETID [Concomitant]
     Active Substance: DISTIGMINE BROMIDE
     Indication: DYSURIA
     Dosage: 5 MG, QD
     Route: 048
     Dates: start: 20151215
  5. CUBICIN [Suspect]
     Active Substance: DAPTOMYCIN
     Dosage: 350 MG, QD, EQUIVALENT TO ABOUT 8 MG/KG
     Route: 041
     Dates: start: 20151228, end: 20160127
  6. THYRADIN [Concomitant]
     Active Substance: LEVOTHYROXINE
     Indication: THYROID HORMONE REPLACEMENT THERAPY
     Dosage: 100 MICROGRAM, QD
     Route: 048
     Dates: start: 20151215
  7. TALION [Concomitant]
     Active Substance: BEPOTASTINE
     Indication: HYPERSENSITIVITY
     Dosage: 10 MG, BID
     Route: 048
     Dates: start: 20160126, end: 20160201
  8. ISOSORBIDE MONONITRATE. [Concomitant]
     Active Substance: ISOSORBIDE MONONITRATE
     Indication: ANGINA PECTORIS
     Dosage: 20 MG, BID
     Route: 048
     Dates: start: 20151215
  9. CUBICIN [Suspect]
     Active Substance: DAPTOMYCIN
     Indication: SPONDYLITIS
     Dosage: 175 MG, QD
     Route: 041
     Dates: start: 20151121, end: 20151207
  10. MIYA-BM [Concomitant]
     Active Substance: CLOSTRIDIUM BUTYRICUM SPORES STRAIN M-55
     Indication: DYSBACTERIOSIS
     Dosage: 1 G, TID
     Route: 048
     Dates: start: 20151216

REACTIONS (5)
  - Oral candidiasis [Recovered/Resolved]
  - Overdose [Unknown]
  - Eosinophilic pneumonia [Recovering/Resolving]
  - Seizure [Recovered/Resolved]
  - Drug effect incomplete [Unknown]

NARRATIVE: CASE EVENT DATE: 20151228
